FAERS Safety Report 9625523 (Version 1)
Quarter: 2013Q4

REPORT INFORMATION
  Report Type: Spontaneous
  Country: US (occurrence: None)
  Receive Date: 20131015
  Receipt Date: 20131015
  Transmission Date: 20140711
  Serious: Yes (Hospitalization)
  Sender: FDA-Public Use
  Company Number: None

PATIENT
  Age: 68 Year
  Sex: Female
  Weight: 68 kg

DRUGS (1)
  1. XELJANZ [Suspect]
     Indication: RHEUMATOID ARTHRITIS
     Dosage: ONE PILL (5 MG) BID ORAL
     Route: 048

REACTIONS (10)
  - Chronic obstructive pulmonary disease [None]
  - Respiratory distress [None]
  - Renal failure acute [None]
  - Weight decreased [None]
  - Upper gastrointestinal haemorrhage [None]
  - Haemoglobin decreased [None]
  - Herpes oesophagitis [None]
  - Cytomegalovirus gastritis [None]
  - Candida infection [None]
  - Catheter site haematoma [None]
